FAERS Safety Report 6127088-4 (Version None)
Quarter: 2009Q2

REPORT INFORMATION
  Report Type: 
  Country: None (occurrence: None)
  Receive Date: 20090318
  Receipt Date: 20090312
  Transmission Date: 20091009
  Serious: Yes (Hospitalization)
  Sender: FDA-Public Use
  Company Number: GXKR2009DE03095

PATIENT
  Age: 65 Year
  Sex: Female
  Weight: 90 kg

DRUGS (8)
  1. RAMIPRIL [Suspect]
     Dosage: 10 MG, QD, ORAL
     Route: 048
  2. CIPROFLOXACIN HCL [Suspect]
     Indication: GASTROENTERITIS
     Dosage: 500 MG, QD
     Dates: start: 20090104, end: 20090110
  3. DIGITOXIN [Concomitant]
  4. LEVOTHYROXINE SODIUM [Concomitant]
  5. FALITHROM  (PHENPROCOUMON) [Concomitant]
  6. HYDROCHLOROTHIAZIDE [Concomitant]
  7. METHOHEXITAL [Concomitant]
  8. TOREM (TORASEDMIDE) [Concomitant]

REACTIONS (1)
  - ATRIAL FIBRILLATION [None]
